FAERS Safety Report 8002286-3 (Version None)
Quarter: 2011Q4

REPORT INFORMATION
  Report Type: 
  Country: None (occurrence: None)
  Receive Date: 20111222
  Receipt Date: 20110307
  Transmission Date: 20120403
  Serious: No
  Sender: FDA-Public Use
  Company Number: US-GLAXOSMITHKLINE-A0916889A

PATIENT
  Age: 64 Year
  Sex: Female

DRUGS (5)
  1. NICORETTE [Suspect]
     Indication: EX-TOBACCO USER
     Dates: start: 20110224
  2. LISINOPRIL [Concomitant]
  3. PRAVASTATIN [Concomitant]
  4. NICOTINE [Suspect]
     Indication: EX-TOBACCO USER
  5. ASPIRIN [Concomitant]

REACTIONS (8)
  - DIZZINESS [None]
  - NAUSEA [None]
  - DRUG INEFFECTIVE [None]
  - DRUG ADMINISTRATION ERROR [None]
  - IRRITABILITY [None]
  - DISTURBANCE IN ATTENTION [None]
  - PRODUCT QUALITY ISSUE [None]
  - NICOTINE DEPENDENCE [None]
